FAERS Safety Report 6942992-2 (Version None)
Quarter: 2010Q3

REPORT INFORMATION
  Report Type: 
  Country: None (occurrence: None)
  Receive Date: 20100826
  Receipt Date: 20100817
  Transmission Date: 20110219
  Serious: Yes (Hospitalization)
  Sender: FDA-Public Use
  Company Number: US-JNJFOC-20100807267

PATIENT
  Sex: Female
  Weight: 55 kg

DRUGS (10)
  1. INFLIXIMAB, RECOMBINANT [Suspect]
     Indication: CROHN'S DISEASE
     Route: 042
  2. AZATHIOPRINE [Concomitant]
  3. HYDROCORTISONE [Concomitant]
  4. PREVACID [Concomitant]
  5. FERROUS SULFATE [Concomitant]
  6. IMODIUM [Concomitant]
  7. METAMUCIL-2 [Concomitant]
  8. PRILOSEC [Concomitant]
  9. ZINC SULFATE [Concomitant]
  10. ANTIBIOTICS [Concomitant]
     Indication: INFLAMMATORY BOWEL DISEASE

REACTIONS (1)
  - CROHN'S DISEASE [None]
